FAERS Safety Report 5916647-7 (Version None)
Quarter: 2008Q4

REPORT INFORMATION
  Report Type: 
  Country: None (occurrence: None)
  Receive Date: 20081009
  Receipt Date: 20081003
  Transmission Date: 20090506
  Serious: Yes (Hospitalization, Other)
  Sender: FDA-Public Use
  Company Number: US024046

PATIENT
  Age: 66 Year
  Sex: Male
  Weight: 159.8 kg

DRUGS (4)
  1. TREANDA [Suspect]
     Indication: CHRONIC LYMPHOCYTIC LEUKAEMIA
     Dosage: 187 MG DAY 1 AND 2, Q28 DAYS INTRAVENOUS
     Route: 042
     Dates: start: 20080522, end: 20080523
  2. TREANDA [Suspect]
     Indication: CHRONIC LYMPHOCYTIC LEUKAEMIA
     Dosage: 187 MG DAY 1 AND 2, Q28 DAYS INTRAVENOUS
     Route: 042
     Dates: start: 20080618, end: 20080618
  3. RITUXAN [Suspect]
     Indication: CHRONIC LYMPHOCYTIC LEUKAEMIA
     Dosage: 700 MG DAY 1 AND 2 Q 28 DAYS
     Dates: start: 20080522, end: 20080523
  4. RITUXAN [Suspect]
     Indication: CHRONIC LYMPHOCYTIC LEUKAEMIA
     Dosage: 700 MG DAY 1 Q 28 DAYS
     Dates: start: 20080618, end: 20080619

REACTIONS (11)
  - BLOOD MAGNESIUM DECREASED [None]
  - BRAIN NATRIURETIC PEPTIDE INCREASED [None]
  - CARDIOMEGALY [None]
  - CHEST X-RAY ABNORMAL [None]
  - HAEMOGLOBIN DECREASED [None]
  - HYPOTENSION [None]
  - NAUSEA [None]
  - PYREXIA [None]
  - RASH MACULO-PAPULAR [None]
  - SEPSIS [None]
  - VOMITING [None]
